FAERS Safety Report 13180503 (Version 1)
Quarter: 2017Q1

REPORT INFORMATION
  Report Type: Spontaneous
  Country: IT (occurrence: IT)
  Receive Date: 20170202
  Receipt Date: 20170202
  Transmission Date: 20170428
  Serious: Yes (Other)
  Sender: FDA-Public Use
  Company Number: IT-JNJFOC-20170126845

PATIENT

DRUGS (2)
  1. INFLIXIMAB, RECOMBINANT [Suspect]
     Active Substance: INFLIXIMAB
     Indication: COLITIS ULCERATIVE
     Route: 042
  2. INFLIXIMAB, RECOMBINANT [Suspect]
     Active Substance: INFLIXIMAB
     Indication: CROHN^S DISEASE
     Route: 042

REACTIONS (11)
  - Skin lesion [Unknown]
  - Headache [Unknown]
  - Therapeutic response decreased [Unknown]
  - Skin reaction [Unknown]
  - Anal fistula [Unknown]
  - Transient ischaemic attack [Unknown]
  - Immune system disorder [Unknown]
  - Nervous system disorder [Unknown]
  - Adverse event [Unknown]
  - Infection [Unknown]
  - Arthralgia [Unknown]
